FAERS Safety Report 4377987-9 (Version None)
Quarter: 2004Q2

REPORT INFORMATION
  Report Type: 
  Country: None (occurrence: None)
  Receive Date: 20040608
  Receipt Date: 20040524
  Transmission Date: 20050107
  Serious: Yes (Hospitalization)
  Sender: FDA-Public Use
  Company Number: STA-AE-04-MTX-235

PATIENT
  Age: 73 Year
  Sex: Male

DRUGS (1)
  1. RHEUMATREX [Suspect]
     Indication: RHEUMATOID ARTHRITIS
     Dosage: 4MG 1X PER WK, ORAL
     Route: 048
     Dates: start: 20040201, end: 20040503

REACTIONS (2)
  - ANAPHYLACTOID SHOCK [None]
  - WHITE BLOOD CELL COUNT DECREASED [None]
